FAERS Safety Report 21287793 (Version 2)
Quarter: 2023Q1

REPORT INFORMATION
  Report Type: Spontaneous
  Country: US (occurrence: US)
  Receive Date: 20220902
  Receipt Date: 20230224
  Transmission Date: 20230417
  Serious: No
  Sender: FDA-Public Use
  Company Number: US-ABBVIE-22K-163-4519176-00

PATIENT
  Sex: Female

DRUGS (2)
  1. IMBRUVICA [Suspect]
     Active Substance: IBRUTINIB
     Indication: Product used for unknown indication
     Dosage: 420 MILLIGRAM
     Route: 048
     Dates: start: 20220406
  2. IMBRUVICA [Suspect]
     Active Substance: IBRUTINIB
     Indication: Product used for unknown indication
     Dosage: THE ONSET DATE OF THE EVENT OF URINE WAS DARKER RED/PINK COLOR MIGHT BE CAUSED BY DIET WAS IN 2022.
     Route: 048
     Dates: start: 202203

REACTIONS (1)
  - Chromaturia [Recovered/Resolved]
